FAERS Safety Report 6694088-5 (Version None)
Quarter: 2010Q2

REPORT INFORMATION
  Report Type: 
  Country: None (occurrence: None)
  Receive Date: 20100423
  Receipt Date: 20100419
  Transmission Date: 20101027
  Serious: Yes (Other)
  Sender: FDA-Public Use
  Company Number: US-ASTRAZENECA-2010SE17304

PATIENT
  Age: 30351 Day
  Sex: Female

DRUGS (3)
  1. FASLODEX [Suspect]
     Indication: BREAST CANCER
     Dosage: 1 INJECTION
     Route: 030
     Dates: start: 20100122, end: 20100122
  2. FASLODEX [Suspect]
     Dosage: 1 INJECTION
     Route: 030
     Dates: start: 20100205, end: 20100205
  3. FASLODEX [Suspect]
     Dosage: 1 INJECTION
     Route: 030
     Dates: start: 20100322, end: 20100322

REACTIONS (3)
  - CONFUSIONAL STATE [None]
  - DEMENTIA [None]
  - SKIN CANCER [None]
